FAERS Safety Report 7543006-6 (Version None)
Quarter: 2011Q2

REPORT INFORMATION
  Report Type: 
  Country: None (occurrence: None)
  Receive Date: 20110613
  Receipt Date: 20110607
  Transmission Date: 20111010
  Serious: Yes (Hospitalization)
  Sender: FDA-Public Use
  Company Number: FR-BRISTOL-MYERS SQUIBB COMPANY-15811730

PATIENT
  Age: 81 Year
  Sex: Female

DRUGS (9)
  1. FENOFIBRATE [Concomitant]
     Indication: HYPERLIPIDAEMIA
  2. NEXIUM [Concomitant]
     Indication: GASTROINTESTINAL DISORDER
     Route: 048
  3. CORDARONE [Concomitant]
     Dosage: 1DF=5 TABLETS
     Route: 048
  4. MORPHINE SULFATE [Suspect]
     Indication: ARTHRALGIA
     Dosage: 17JAN11:1 CAPS EVERY FOUR HOURS(6 CAPSULES) 18JAN11:1 CAPS
     Dates: start: 20110117, end: 20110118
  5. ACETAMINOPHEN [Suspect]
     Indication: ARTHRALGIA
     Dosage: 1DF=2 IN A SINGLE DOSE 2 TABLETS
     Route: 048
     Dates: start: 20110118
  6. COUMADIN [Suspect]
     Indication: THROMBOSIS PROPHYLAXIS
     Route: 048
     Dates: end: 20110118
  7. MEPROBAMATE [Suspect]
     Indication: INSOMNIA
     Dosage: 1DF=2.UNIT NOT SPECIFIED
     Route: 048
     Dates: end: 20110118
  8. ALDACTONE [Concomitant]
     Indication: HYPERTENSION
     Route: 048
  9. SYMBICORT [Concomitant]
     Indication: ASTHMA
     Route: 055

REACTIONS (6)
  - FALL [None]
  - HAEMATOMA [None]
  - HYPOVOLAEMIC SHOCK [None]
  - OVERDOSE [None]
  - ANAEMIA [None]
  - FACE INJURY [None]
